FAERS Safety Report 18092540 (Version 1)
Quarter: 2020Q3

REPORT INFORMATION
  Report Type: Spontaneous
  Country: US (occurrence: US)
  Receive Date: 20200730
  Receipt Date: 20200730
  Transmission Date: 20201103
  Serious: No
  Sender: FDA-Public Use
  Company Number: US-PFIZER INC-2020288532

PATIENT
  Age: 69 Year
  Sex: Female
  Weight: 72.57 kg

DRUGS (5)
  1. MULTIPLE VITAMINS [Concomitant]
     Active Substance: VITAMINS
  2. FASLODEX [Concomitant]
     Active Substance: FULVESTRANT
     Dosage: UNK UNK, MONTHLY
     Dates: end: 20200707
  3. IBRANCE [Suspect]
     Active Substance: PALBOCICLIB
     Indication: BREAST CANCER METASTATIC
     Dosage: 125 MG, CYCLIC (THREE WEEKS AND ONE WEEK OFF)
  4. TYLENOL [Concomitant]
     Active Substance: ACETAMINOPHEN
     Indication: PAIN
     Dosage: UNK, AS NEEDED
  5. IBUPROFEN. [Concomitant]
     Active Substance: IBUPROFEN
     Indication: PAIN
     Dosage: UNK, AS NEEDED

REACTIONS (2)
  - Fatigue [Recovered/Resolved]
  - Blood count abnormal [Recovered/Resolved]
